FAERS Safety Report 6077039-6 (Version None)
Quarter: 2009Q1

REPORT INFORMATION
  Report Type: 
  Country: None (occurrence: None)
  Receive Date: 20090211
  Receipt Date: 20090211
  Transmission Date: 20090719
  Serious: Yes (Death, Hospitalization)
  Sender: FDA-Public Use
  Company Number: None

PATIENT
  Sex: Male
  Weight: 89.2 kg

DRUGS (2)
  1. DACARBAZINE [Suspect]
     Indication: MALIGNANT MELANOMA
     Dosage: 1050MG, Q21DAYS, IV
     Route: 042
     Dates: start: 20081215, end: 20090105
  2. DASATINIB -50MG BID-BRISTOL-MYERS SQUIBB [Suspect]
     Indication: MALIGNANT MELANOMA
     Dosage: 50MG, BID, FOR 18DAYS
     Dates: start: 20081215, end: 20090111

REACTIONS (3)
  - DISEASE PROGRESSION [None]
  - DYSPNOEA [None]
  - NUCLEAR MAGNETIC RESONANCE IMAGING BRAIN ABNORMAL [None]
